FAERS Safety Report 15996808 (Version 1)
Quarter: 2019Q1

REPORT INFORMATION
  Report Type: Spontaneous
  Country: CA (occurrence: CA)
  Receive Date: 20190222
  Receipt Date: 20190222
  Transmission Date: 20190418
  Serious: Yes (Other)
  Sender: FDA-Public Use
  Company Number: CA-INCYTE CORPORATION-2019IN001429

PATIENT

DRUGS (1)
  1. JAKAVI [Suspect]
     Active Substance: RUXOLITINIB
     Indication: MYELOFIBROSIS
     Dosage: UNK
     Route: 065
     Dates: start: 20170609

REACTIONS (10)
  - Nephritis [Recovering/Resolving]
  - Chronic graft versus host disease [Unknown]
  - Graft versus host disease in liver [Unknown]
  - Adenoviral haemorrhagic cystitis [Recovered/Resolved]
  - Pneumonia [Unknown]
  - Herpes simplex [Recovered/Resolved]
  - Cytomegalovirus viraemia [Unknown]
  - Acute graft versus host disease [Unknown]
  - Fanconi syndrome [Recovering/Resolving]
  - Acute kidney injury [Recovering/Resolving]
